FAERS Safety Report 8225348-4 (Version None)
Quarter: 2012Q1

REPORT INFORMATION
  Report Type: 
  Country: None (occurrence: None)
  Receive Date: 20120321
  Receipt Date: 20120229
  Transmission Date: 20120608
  Serious: Yes (Death, Life-Threatening, Hospitalization)
  Sender: FDA-Public Use
  Company Number: IN-VIIV HEALTHCARE LIMITED-B0785403A

PATIENT
  Sex: Male
  Weight: 49.5 kg

DRUGS (7)
  1. OMEPRAZOLE [Concomitant]
     Indication: NAUSEA
     Dosage: 20MG PER DAY
     Route: 048
  2. LAMIVUDINE + ZIDOVUDINE [Suspect]
     Indication: HIV INFECTION
     Route: 048
     Dates: start: 20120105, end: 20120224
  3. DOMPERIDONE [Concomitant]
     Indication: NAUSEA
     Dosage: 10MG PER DAY
     Route: 048
  4. NORFLOXACIN [Concomitant]
     Indication: URINARY TRACT INFECTION
     Dosage: 400MG PER DAY
     Route: 048
  5. DISODIUM HYDROGEN CITRATE [Concomitant]
     Indication: URINARY TRACT INFECTION
     Route: 048
  6. NEVIRAPINE [Suspect]
     Indication: HIV INFECTION
     Dosage: 200MG TWICE PER DAY
     Route: 048
     Dates: start: 20120106, end: 20120224
  7. REHYDRATION FLUID [Concomitant]
     Indication: HYPOTENSION
     Route: 048

REACTIONS (3)
  - SEPSIS [None]
  - MULTI-ORGAN FAILURE [None]
  - PANCYTOPENIA [None]
